FAERS Safety Report 20280357 (Version 2)
Quarter: 2024Q2

REPORT INFORMATION
  Report Type: Spontaneous
  Country: CN (occurrence: CN)
  Receive Date: 20220103
  Receipt Date: 20240423
  Transmission Date: 20240716
  Serious: Yes (Other)
  Sender: FDA-Public Use
  Company Number: CN-UCBSA-2021061425

PATIENT
  Age: 7 Year
  Sex: Female

DRUGS (2)
  1. KEPPRA [Suspect]
     Active Substance: LEVETIRACETAM
     Indication: Petit mal epilepsy
     Dosage: MAXIMUM DOSE WAS 37.50 MG/KG/D
  2. LAMOTRIGINE [Suspect]
     Active Substance: LAMOTRIGINE
     Indication: Petit mal epilepsy
     Dosage: MAXIMUM DOSE WAS 6.25 MG/KG/D

REACTIONS (2)
  - Petit mal epilepsy [Unknown]
  - Multiple-drug resistance [Unknown]
